FAERS Safety Report 16278024 (Version 1)
Quarter: 2019Q2

REPORT INFORMATION
  Report Type: Report from Study
  Country: GB (occurrence: GB)
  Receive Date: 20190506
  Receipt Date: 20190506
  Transmission Date: 20190711
  Serious: Yes (Other)
  Sender: FDA-Public Use
  Company Number: GB-PFIZER INC-2019182876

PATIENT
  Age: 58 Year
  Sex: Female
  Weight: 84 kg

DRUGS (4)
  1. LEUCOVORIN CALCIUM FARMOS [CALCIUM FOLINATE;FOLINIC ACID] [Suspect]
     Active Substance: LEUCOVORIN CALCIUM
     Indication: COLORECTAL CANCER METASTATIC
     Dosage: 800 MG, OVER 2 HOURS, DAY 1 AND 15
     Route: 042
     Dates: start: 20181102
  2. FLUOROURACIL. [Suspect]
     Active Substance: FLUOROURACIL
     Indication: COLORECTAL CANCER METASTATIC
     Dosage: 780 MG, OVER 30 MINUTES ON DAY 1 AND 15
     Route: 040
     Dates: start: 20181102
  3. FLUOROURACIL. [Suspect]
     Active Substance: FLUOROURACIL
     Dosage: 4650 MG, OVER 6 HOURS, ON DAY 1 AND 15
     Route: 042
     Dates: start: 20181102
  4. OXALIPLATIN. [Suspect]
     Active Substance: OXALIPLATIN
     Indication: COLORECTAL CANCER METASTATIC
     Dosage: 130 MG, DAY 1, 8 AND 15
     Route: 042
     Dates: start: 20181102

REACTIONS (1)
  - Pulmonary embolism [Recovered/Resolved]

NARRATIVE: CASE EVENT DATE: 20181227
